FAERS Safety Report 22057823 (Version 1)
Quarter: 2023Q1

REPORT INFORMATION
  Report Type: Report from Study
  Country: US (occurrence: US)
  Receive Date: 20230303
  Receipt Date: 20230303
  Transmission Date: 20230417
  Serious: No
  Sender: FDA-Public Use
  Company Number: US-ORG100014127-2022000890

PATIENT
  Age: 45 Year
  Sex: Male

DRUGS (2)
  1. METOPIRONE [Suspect]
     Active Substance: METYRAPONE
     Indication: Cushing^s syndrome
     Dosage: 1 CAPSULE (250 MG) BY MOUTH FOUR TIMES DAILY
     Route: 048
  2. METOPIRONE [Suspect]
     Active Substance: METYRAPONE
     Indication: Cushing^s syndrome
     Dosage: 24 TABLETS DAILY
     Dates: start: 20220813, end: 20230109

REACTIONS (1)
  - Off label use [Unknown]
